FAERS Safety Report 15060702 (Version 2)
Quarter: 2018Q3

REPORT INFORMATION
  Report Type: Spontaneous
  Country: JP (occurrence: JP)
  Receive Date: 20180625
  Receipt Date: 20180725
  Transmission Date: 20181010
  Serious: No
  Sender: FDA-Public Use
  Company Number: JP-ELI_LILLY_AND_COMPANY-JP201806004821

PATIENT
  Age: 81 Year
  Sex: Male

DRUGS (6)
  1. GASTER [Concomitant]
     Active Substance: FAMOTIDINE
  2. EBRANTIL                           /00631801/ [Concomitant]
     Active Substance: URAPIDIL
  3. ZALUTIA 5MG [Suspect]
     Active Substance: TADALAFIL
     Indication: BENIGN PROSTATIC HYPERPLASIA
     Dosage: 5 MG, DAILY
     Route: 048
     Dates: start: 201711, end: 201806
  4. URIEF [Concomitant]
     Active Substance: SILODOSIN
  5. AMLODIPINE                         /00972402/ [Concomitant]
     Active Substance: AMLODIPINE BESYLATE
  6. BETANIS [Concomitant]
     Active Substance: MIRABEGRON

REACTIONS (2)
  - Deafness [Unknown]
  - Visual acuity reduced [Unknown]

NARRATIVE: CASE EVENT DATE: 201806
